FAERS Safety Report 5223071-1 (Version None)
Quarter: 2007Q1

REPORT INFORMATION
  Report Type: 
  Country: None (occurrence: None)
  Receive Date: 20070124
  Receipt Date: 20070110
  Transmission Date: 20070707
  Serious: Yes (Hospitalization)
  Sender: FDA-Public Use
  Company Number: RENA-12064

PATIENT
  Age: 66 Year
  Sex: Male
  Weight: 62 kg

DRUGS (5)
  1. RENAGEL [Suspect]
     Indication: HYPERPHOSPHATAEMIA
     Dosage: 0.5 G TID PO
     Route: 048
     Dates: start: 20060131
  2. SENEVACUL [Concomitant]
  3. LAXOBERON [Concomitant]
  4. LOSARTAN POTASSIUM [Concomitant]
  5. NORVASC [Concomitant]

REACTIONS (2)
  - ABDOMINAL PAIN UPPER [None]
  - REFLUX OESOPHAGITIS [None]
